FAERS Safety Report 7121794-0 (Version None)
Quarter: 2010Q4

REPORT INFORMATION
  Report Type: 
  Country: None (occurrence: None)
  Receive Date: 20101124
  Receipt Date: 20101109
  Transmission Date: 20110411
  Serious: Yes (Hospitalization)
  Sender: FDA-Public Use
  Company Number: US-AMGEN-USASP2010004597

PATIENT

DRUGS (2)
  1. ENBREL [Suspect]
     Indication: RHEUMATOID ARTHRITIS
     Dosage: 50 MG, QWK
     Dates: start: 20091016
  2. TREXALL [Concomitant]
     Dosage: 1 MG, QWK
     Dates: start: 20000101

REACTIONS (7)
  - ALOPECIA [None]
  - ANAESTHETIC COMPLICATION NEUROLOGICAL [None]
  - COMA [None]
  - IMPAIRED HEALING [None]
  - SCRATCH [None]
  - STAPHYLOCOCCAL INFECTION [None]
  - VAGINAL HAEMORRHAGE [None]
